FAERS Safety Report 10297043 (Version 1)
Quarter: 2014Q3

REPORT INFORMATION
  Report Type: Spontaneous
  Country: US (occurrence: None)
  Receive Date: 20140708
  Receipt Date: 20140708
  Transmission Date: 20150326
  Serious: Yes (Other)
  Sender: FDA-Public Use
  Company Number: None

PATIENT
  Age: 63 Year
  Sex: Female
  Weight: 81.65 kg

DRUGS (1)
  1. GLIPIZIDE. [Suspect]
     Active Substance: GLIPIZIDE
     Indication: DIABETES MELLITUS
     Dosage: PO BID, 1 PO QHS, ORAL
     Route: 048
     Dates: start: 20120219

REACTIONS (3)
  - Peripheral swelling [None]
  - Hypoaesthesia [None]
  - Reaction to drug excipients [None]

NARRATIVE: CASE EVENT DATE: 201312
